FAERS Safety Report 21034907 (Version 3)
Quarter: 2022Q3

REPORT INFORMATION
  Report Type: Spontaneous
  Country: US (occurrence: US)
  Receive Date: 20220701
  Receipt Date: 20220819
  Transmission Date: 20221026
  Serious: Yes (Hospitalization)
  Sender: FDA-Public Use
  Company Number: US-CATALYST PHARMACEUTICALS, INC-2022CAT00448

PATIENT
  Sex: Male
  Weight: 62.585 kg

DRUGS (27)
  1. FIRDAPSE [Suspect]
     Active Substance: AMIFAMPRIDINE PHOSPHATE
     Indication: Myasthenic syndrome
     Dosage: 2 TABLETS AT 7:00 AM, 1 TABLET AT 11:00 AM, 1 TABLET AT 3:00 PM, 1 TABLET AT 7:00 PM AND 1 TABLET AT
     Route: 048
     Dates: start: 20190419
  2. BELSOMRA [Concomitant]
     Active Substance: SUVOREXANT
     Dosage: 20 MG, AS NEEDED
  3. NORTHERA [Concomitant]
     Active Substance: DROXIDOPA
     Dosage: 100 MG, 3X/DAY
     Route: 048
  4. NORTHERA [Concomitant]
     Active Substance: DROXIDOPA
     Dosage: 200 MG, 3X/DAY
     Route: 048
  5. FERRIC POLYSACCHARIDE COMPLEX [Concomitant]
     Active Substance: FERRIC POLYSACCHARIDE COMPLEX
     Dosage: 150 MG, 2X/DAY
  6. FERRIC POLYSACCHARIDE COMPLEX [Concomitant]
     Active Substance: FERRIC POLYSACCHARIDE COMPLEX
     Dosage: 150 MG, 1X/DAY
  7. FLUDROCORTISONE [Concomitant]
     Active Substance: FLUDROCORTISONE
     Dosage: 0.1 MG, 1X/DAY
     Route: 048
  8. FLUDROCORTISONE [Concomitant]
     Active Substance: FLUDROCORTISONE
     Dosage: 0.1 MG, 1X/DAY ON MONDAY, WEDNESDAY, AND FRIDAY
     Route: 048
  9. FLUDROCORTISONE [Concomitant]
     Active Substance: FLUDROCORTISONE
     Dosage: 0.1 MG, 1X/DAY
     Route: 048
  10. GAMMAGARD [Concomitant]
     Active Substance: HUMAN IMMUNOGLOBULIN G
     Dosage: 30 G PER 30 ML, EVERY TWO WEEKS
  11. GAMMAGARD [Concomitant]
     Active Substance: HUMAN IMMUNOGLOBULIN G
     Dosage: 24.48 G, EVERY 2 WEEKS FOR A TOTAL OF 29 INFUSIONS
     Route: 042
  12. HUMALOG [Concomitant]
     Active Substance: INSULIN LISPRO
     Dosage: UP TO 80 UNITS PER DAY IN PUMP, AS NEEDED
  13. LEVOTHYROXINE [Concomitant]
     Active Substance: LEVOTHYROXINE
     Dosage: 88 ?G, 1X/DAY
     Route: 048
  14. LOPERAMIDE [Concomitant]
     Active Substance: LOPERAMIDE
     Dosage: 2 MG, 3X/DAY BEFORE MEALS
     Route: 048
  15. MESTINON [Concomitant]
     Active Substance: PYRIDOSTIGMINE BROMIDE
     Dosage: 60 MG, 3X/DAY
     Route: 048
  16. MESTINON [Concomitant]
     Active Substance: PYRIDOSTIGMINE BROMIDE
     Dosage: 60 MG, 4X/DAY
     Route: 048
  17. ONDANSETRON [Concomitant]
     Active Substance: ONDANSETRON
     Dosage: 4 MG, AS NEEDED
  18. OZEMPIC [Concomitant]
     Active Substance: SEMAGLUTIDE
     Dosage: 2 MG, 1X/WEEK
  19. OZEMPIC [Concomitant]
     Active Substance: SEMAGLUTIDE
     Dosage: 0.5 MG, 1X/WEEK
     Route: 058
  20. PANTOPRAZOLE [Concomitant]
     Active Substance: PANTOPRAZOLE
     Dosage: 40 MG, 1X/DAY
     Route: 048
  21. PLAQUENIL [Concomitant]
     Active Substance: HYDROXYCHLOROQUINE SULFATE
     Dosage: 200 MG, 1X/DAY
     Route: 048
  22. PROBIOTICS NOS [Concomitant]
     Active Substance: PROBIOTICS NOS
     Dosage: 1 CAPSULE, 1X/DAY
     Route: 048
  23. ELECTROLYTES IV [Concomitant]
     Dosage: 1 BAG, 1X/DAY AT BE
     Route: 042
  24. VITAMIN A [Concomitant]
     Active Substance: VITAMIN A
     Dosage: 4800 ?G, 1X/DAY
  25. VITAMIN D3 [Concomitant]
     Active Substance: CHOLECALCIFEROL
     Dosage: 5000 IU, 1X/DAY
     Route: 048
  26. VITAMINS [Concomitant]
     Active Substance: VITAMINS
     Dosage: 4800 IU
     Route: 048
  27. ELIQUIS [Concomitant]
     Active Substance: APIXABAN
     Dosage: 2.5 MG, 2X/DAY

REACTIONS (10)
  - Localised oedema [Recovering/Resolving]
  - Complication associated with device [Recovering/Resolving]
  - Staphylococcal infection [Recovered/Resolved]
  - Superior vena cava occlusion [Not Recovered/Not Resolved]
  - Product dose omission issue [Not Recovered/Not Resolved]
  - Swelling face [Recovering/Resolving]
  - Subclavian vein occlusion [Unknown]
  - Face oedema [Unknown]
  - Oedema peripheral [Unknown]
  - Hepatic enzyme increased [Unknown]

NARRATIVE: CASE EVENT DATE: 20220101
